FAERS Safety Report 8712841 (Version 2)
Quarter: 2012Q4

REPORT INFORMATION
  Report Type: 
  Country: CN (occurrence: CN)
  Receive Date: 20120808
  Receipt Date: 20121217
  Transmission Date: 20130627
  Serious: Yes (Hospitalization)
  Sender: FDA-Public Use
  Company Number: CN-ASTELLAS-2012JP007258

PATIENT
  Sex: Female

DRUGS (8)
  1. TACROLIMUS [Suspect]
     Indication: LIVER TRANSPLANT
     Dosage: UNK
     Route: 048
     Dates: start: 2011
  2. TACROLIMUS [Suspect]
     Dosage: UNK
     Route: 048
     Dates: start: 20010613, end: 2011
  3. TACROLIMUS [Suspect]
     Dosage: 1.5 mg, bid
     Route: 048
  4. TACROLIMUS [Suspect]
     Dosage: 1.25 mg, bid
     Route: 048
  5. IMMUNE GLOBULIN [Concomitant]
     Route: 065
  6. HEPTODIN [Concomitant]
     Route: 065
  7. URSODEOXYCHOLIC ACID [Concomitant]
     Route: 048
  8. CELLCEPT                           /01275102/ [Concomitant]
     Dosage: UNK
     Route: 065

REACTIONS (3)
  - Exposure during pregnancy [Unknown]
  - Liver transplant rejection [Recovered/Resolved]
  - Hepatic function abnormal [Recovered/Resolved]
